FAERS Safety Report 5022474-8 (Version None)
Quarter: 2006Q2

REPORT INFORMATION
  Report Type: 
  Country: None (occurrence: None)
  Receive Date: 20060605
  Receipt Date: 20060523
  Transmission Date: 20061013
  Serious: Yes (Disabling)
  Sender: FDA-Public Use
  Company Number: 2006037156

PATIENT
  Age: 75 Year
  Sex: Male

DRUGS (6)
  1. ZYVOX [Suspect]
     Indication: INTERVERTEBRAL DISCITIS
     Dates: start: 20051001, end: 20060203
  2. IBUPROFEN [Concomitant]
  3. FUROSEMIDE [Concomitant]
  4. NEXIUM [Concomitant]
  5. TAMSULOSIN HCL [Concomitant]
  6. BENALAPRIL (ENALAPRIL) [Concomitant]

REACTIONS (6)
  - ANAEMIA [None]
  - DEMYELINATING POLYNEUROPATHY [None]
  - DRUG INEFFECTIVE [None]
  - GAMMA-GLUTAMYLTRANSFERASE INCREASED [None]
  - PERIPHERAL SENSORY NEUROPATHY [None]
  - PROTEIN TOTAL DECREASED [None]
